FAERS Safety Report 24595612 (Version 2)
Quarter: 2024Q4

REPORT INFORMATION
  Report Type: Spontaneous
  Country: JP (occurrence: JP)
  Receive Date: 20241109
  Receipt Date: 20241125
  Transmission Date: 20250115
  Serious: Yes (Death, Life-Threatening, Hospitalization, Other)
  Sender: SANOFI AVENTIS
  Company Number: JP-SA-2024SA322256

PATIENT
  Age: 71 Year
  Sex: Female

DRUGS (2)
  1. RASBURICASE [Suspect]
     Active Substance: RASBURICASE
     Indication: Tumour lysis syndrome
     Dosage: UNK
     Route: 041
  2. RASBURICASE [Suspect]
     Active Substance: RASBURICASE
     Indication: Prophylaxis

REACTIONS (13)
  - Anaphylactic shock [Fatal]
  - Dyspnoea [Fatal]
  - Erythema [Fatal]
  - Wheezing [Fatal]
  - Distributive shock [Fatal]
  - Cardio-respiratory arrest [Fatal]
  - Pleural effusion [Fatal]
  - Haemothorax [Fatal]
  - Crush injury [Fatal]
  - Haemorrhage [Fatal]
  - Obstructive shock [Fatal]
  - Circulatory collapse [Fatal]
  - Pneumothorax [Fatal]
